FAERS Safety Report 10877537 (Version 1)
Quarter: 2015Q1

REPORT INFORMATION
  Report Type: Spontaneous
  Country: SE (occurrence: SE)
  Receive Date: 20150302
  Receipt Date: 20150302
  Transmission Date: 20150721
  Serious: Yes (Life-Threatening)
  Sender: FDA-Public Use
  Company Number: SE-BAYER-2015-025452

PATIENT
  Age: 63 Year
  Sex: Male

DRUGS (3)
  1. KAVEPENIN [Concomitant]
     Active Substance: PHENOXYMETHYLPENICILLIN CALCIUM
  2. ALVEDON [Suspect]
     Active Substance: ACETAMINOPHEN
  3. AVELOX [Suspect]
     Active Substance: MOXIFLOXACIN HYDROCHLORIDE
     Indication: PNEUMONIA
     Dosage: 400 MG, QD
     Route: 048
     Dates: start: 20140225, end: 20140302

REACTIONS (2)
  - Acute hepatic failure [Unknown]
  - Multi-organ failure [Unknown]

NARRATIVE: CASE EVENT DATE: 20140302
